FAERS Safety Report 12530178 (Version 2)
Quarter: 2016Q3

REPORT INFORMATION
  Report Type: Spontaneous
  Country: US (occurrence: US)
  Receive Date: 20160706
  Receipt Date: 20160804
  Transmission Date: 20161109
  Serious: Yes (Other)
  Sender: FDA-Public Use
  Company Number: US-PFIZER INC-2016328707

PATIENT
  Age: 32 Year
  Sex: Female
  Weight: 70 kg

DRUGS (3)
  1. BICILLIN L-A [Suspect]
     Active Substance: PENICILLIN G BENZATHINE
     Indication: RHEUMATIC FEVER
     Dosage: 1.2 MILLION UNITS INJECTED ONCE A MONTH IM
     Route: 030
     Dates: start: 20140207
  2. TYLENOL [Suspect]
     Active Substance: ACETAMINOPHEN
  3. BICILLIN L-A [Suspect]
     Active Substance: PENICILLIN G BENZATHINE
     Indication: ENCEPHALOMYELITIS

REACTIONS (5)
  - Neurological symptom [Unknown]
  - Headache [Unknown]
  - Malaise [Unknown]
  - Muscular weakness [Unknown]
  - Seizure [Unknown]

NARRATIVE: CASE EVENT DATE: 20160229
